FAERS Safety Report 8264670-2 (Version None)
Quarter: 2012Q2

REPORT INFORMATION
  Report Type: 
  Country: None (occurrence: None)
  Receive Date: 20120406
  Receipt Date: 20120330
  Transmission Date: 20120825
  Serious: Yes (Other)
  Sender: FDA-Public Use
  Company Number: BR-SANOFI-AVENTIS-2012SA022661

PATIENT
  Age: 48 Year
  Sex: Male
  Weight: 85 kg

DRUGS (2)
  1. SOLOSTAR [Suspect]
     Indication: DEVICE THERAPY
  2. LANTUS [Suspect]
     Route: 065

REACTIONS (1)
  - GLAUCOMA [None]
